FAERS Safety Report 9972250 (Version 2)
Quarter: 2014Q1

REPORT INFORMATION
  Report Type: Spontaneous
  Country: DE (occurrence: None)
  Receive Date: 20140304
  Receipt Date: 20140311
  Transmission Date: 20141002
  Serious: Yes (Disabling, Other)
  Sender: FDA-Public Use
  Company Number: SYM-2014-17551

PATIENT
  Age: 80 Year
  Sex: Male

DRUGS (1)
  1. ZYCLARA [Suspect]
     Indication: PRECANCEROUS SKIN LESION
     Route: 061
     Dates: start: 20131101, end: 20131122

REACTIONS (9)
  - Myalgia [None]
  - Rheumatic disorder [None]
  - Muscular weakness [None]
  - Pollakiuria [None]
  - Dry skin [None]
  - Abdominal hernia [None]
  - Osteoarthritis [None]
  - Tendon rupture [None]
  - Polymyalgia rheumatica [None]
